FAERS Safety Report 5782192-5 (Version None)
Quarter: 2008Q2

REPORT INFORMATION
  Report Type: 
  Country: None (occurrence: None)
  Receive Date: 20080623
  Receipt Date: 20080616
  Transmission Date: 20081010
  Serious: Yes (Other)
  Sender: FDA-Public Use
  Company Number: US-SANOFI-SYNTHELABO-A03200802418

PATIENT
  Sex: Female

DRUGS (2)
  1. PLAVIX [Suspect]
     Indication: PERIPHERAL ARTERIAL OCCLUSIVE DISEASE
     Route: 048
     Dates: start: 20080501, end: 20080101
  2. PLAVIX [Suspect]
     Indication: THROMBOSIS
     Route: 048
     Dates: start: 20080501, end: 20080101

REACTIONS (5)
  - ABDOMINAL PAIN UPPER [None]
  - GAIT DISTURBANCE [None]
  - HEART RATE INCREASED [None]
  - LOSS OF CONSCIOUSNESS [None]
  - TINNITUS [None]
